FAERS Safety Report 4308312-7 (Version None)
Quarter: 2004Q1

REPORT INFORMATION
  Report Type: 
  Country: None (occurrence: None)
  Receive Date: 20040301
  Receipt Date: 20031210
  Transmission Date: 20041129
  Serious: No
  Sender: FDA-Public Use
  Company Number: US-BRISTOL-MYERS SQUIBB COMPANY-12454856

PATIENT
  Age: 16 Year
  Sex: Female

DRUGS (2)
  1. GLUCOPHAGE [Suspect]
     Dosage: INITIALLY STARTED ON 500MG DAILY X 2 WEEKS
     Route: 048
  2. PROVERA [Concomitant]
     Dosage: PATIENT TAKES FOR 10 DAYS PER MONTH

REACTIONS (1)
  - BLOOD INSULIN INCREASED [None]
